FAERS Safety Report 10040993 (Version 1)
Quarter: 2014Q1

REPORT INFORMATION
  Report Type: Spontaneous
  Country: JP (occurrence: JP)
  Receive Date: 20140327
  Receipt Date: 20140327
  Transmission Date: 20141002
  Serious: Yes (Death)
  Sender: FDA-Public Use
  Company Number: JP-ROCHE-1368160

PATIENT
  Age: 69 Year
  Sex: Male

DRUGS (1)
  1. ACTIVACIN [Suspect]
     Indication: CEREBRAL INFARCTION
     Route: 065
     Dates: start: 20080630

REACTIONS (1)
  - Cerebral infarction [Fatal]
